FAERS Safety Report 8157138-5 (Version None)
Quarter: 2012Q1

REPORT INFORMATION
  Report Type: 
  Country: None (occurrence: None)
  Receive Date: 20120222
  Receipt Date: 20120213
  Transmission Date: 20120608
  Serious: Yes (Hospitalization)
  Sender: FDA-Public Use
  Company Number: US-BAYER-2011-068186

PATIENT
  Age: 28 Year
  Sex: Female
  Weight: 118.82 kg

DRUGS (6)
  1. YASMIN [Suspect]
     Indication: CONTRACEPTION
     Dosage: UNK
     Route: 048
     Dates: start: 20100101, end: 20100925
  2. SYNTHROID [Concomitant]
     Dosage: UNK
     Route: 048
     Dates: start: 20100706, end: 20101126
  3. TIZANIDINE HCL [Concomitant]
     Dosage: 4 MG, UNK
     Route: 048
     Dates: start: 20100312, end: 20101126
  4. GLUCOPHAGE [Concomitant]
     Dosage: 500 MG, UNK
     Route: 048
     Dates: start: 20100811, end: 20100913
  5. METFORMIN HCL [Concomitant]
     Dosage: 500 MG, UNK
     Route: 048
     Dates: start: 20100628
  6. TRAMADOL HCL [Concomitant]
     Dosage: 50 MG, UNK
     Route: 048
     Dates: start: 20100312, end: 20101126

REACTIONS (3)
  - DYSPNOEA [None]
  - PULMONARY EMBOLISM [None]
  - CHEST PAIN [None]
